FAERS Safety Report 7203760-X (Version None)
Quarter: 2010Q4

REPORT INFORMATION
  Report Type: 
  Country: None (occurrence: None)
  Receive Date: 20101230
  Receipt Date: 20101220
  Transmission Date: 20110411
  Serious: Yes (Hospitalization)
  Sender: FDA-Public Use
  Company Number: PHHO2010BR19294

PATIENT
  Sex: Male
  Weight: 75.4 kg

DRUGS (8)
  1. MYFORTIC [Suspect]
     Indication: RENAL TRANSPLANT
     Dosage: 720 MG, BID
     Route: 048
     Dates: start: 20100807, end: 20101027
  2. MYFORTIC [Suspect]
     Dosage: UNK
     Route: 048
     Dates: start: 20101111
  3. TACROLIMUS [Suspect]
     Indication: RENAL TRANSPLANT
     Dosage: 6 MG, BID
     Route: 048
     Dates: start: 20100807
  4. PREDNISONE [Concomitant]
     Indication: RENAL TRANSPLANT
     Dosage: 10 MG, UNK
     Route: 048
     Dates: start: 20100807
  5. BACTRIM [Concomitant]
     Indication: PROPHYLAXIS
  6. AMLODIPINE [Concomitant]
     Indication: HYPERTENSION
  7. ATENOLOL [Concomitant]
     Indication: HYPERTENSION
  8. FUROSEMIDE [Concomitant]
     Indication: HYPERTENSION

REACTIONS (3)
  - FEBRILE NEUTROPENIA [None]
  - PNEUMONIA KLEBSIELLA [None]
  - URINARY TRACT INFECTION [None]
